FAERS Safety Report 8895400 (Version 2)
Quarter: 2012Q4

REPORT INFORMATION
  Report Type: 
  Country: DE (occurrence: DE)
  Receive Date: 20121108
  Receipt Date: 20121123
  Transmission Date: 20130627
  Serious: Yes (Hospitalization)
  Sender: FDA-Public Use
  Company Number: PHHO2012DE015956

PATIENT
  Age: 42 Year
  Sex: Male
  Weight: 67 kg

DRUGS (5)
  1. CERTICAN [Suspect]
     Indication: RENAL TRANSPLANT
     Dosage: 2.5 mg, BID
     Route: 048
     Dates: start: 20120906
  2. MYFORTIC [Suspect]
     Indication: RENAL TRANSPLANT
     Dosage: 360 mg, BID
     Route: 048
     Dates: start: 20120627
  3. PREDNISONE [Suspect]
     Indication: RENAL TRANSPLANT
     Dosage: 7.5 mg, QD
     Route: 048
     Dates: start: 20120627
  4. PROGRAF [Suspect]
     Indication: RENAL TRANSPLANT
     Dosage: 2.5 mg, BID
     Route: 048
     Dates: start: 20120627
  5. SIMULECT [Concomitant]
     Indication: RENAL TRANSPLANT
     Dosage: 20 mg, UNK
     Route: 042
     Dates: start: 20120627

REACTIONS (1)
  - Pyrexia [Recovering/Resolving]
